FAERS Safety Report 21364768 (Version 1)
Quarter: 2022Q3

REPORT INFORMATION
  Report Type: Spontaneous
  Country: US (occurrence: US)
  Receive Date: 20220922
  Receipt Date: 20220922
  Transmission Date: 20221027
  Serious: No
  Sender: FDA-Public Use
  Company Number: US-ORGANON-O2209USA000573

PATIENT
  Age: 59 Year
  Sex: Female

DRUGS (1)
  1. COZAAR [Suspect]
     Active Substance: LOSARTAN POTASSIUM
     Indication: Hypertension
     Dosage: UNK, MORE THAN 10 YEARS
     Route: 048
     Dates: end: 201910

REACTIONS (1)
  - Sprue-like enteropathy [Recovered/Resolved]
